FAERS Safety Report 7080185-1 (Version None)
Quarter: 2010Q4

REPORT INFORMATION
  Report Type: 
  Country: None (occurrence: None)
  Receive Date: 20101103
  Receipt Date: 20101022
  Transmission Date: 20110411
  Serious: Yes (Hospitalization)
  Sender: FDA-Public Use
  Company Number: US-BIOGENIDEC-2010BI017447

PATIENT
  Age: 39 Year
  Sex: Female

DRUGS (1)
  1. TYSABRI [Suspect]
     Indication: MULTIPLE SCLEROSIS
     Route: 042
     Dates: start: 20080111

REACTIONS (5)
  - DRUG HYPERSENSITIVITY [None]
  - FATIGUE [None]
  - MOBILITY DECREASED [None]
  - MUSCLE SPASTICITY [None]
  - URINARY TRACT INFECTION [None]
